FAERS Safety Report 16439093 (Version 4)
Quarter: 2020Q2

REPORT INFORMATION
  Report Type: Spontaneous
  Country: US (occurrence: US)
  Receive Date: 20190617
  Receipt Date: 20200423
  Transmission Date: 20200713
  Serious: Yes (Other)
  Sender: FDA-Public Use
  Company Number: US-GILEAD-2019-0413064

PATIENT
  Age: 47 Year
  Sex: Male

DRUGS (43)
  1. SULFAMETHOXAZOLE AND TRIMETHOPRIM [Concomitant]
     Active Substance: SULFAMETHOXAZOLE\TRIMETHOPRIM
  2. KEFLEX [Concomitant]
     Active Substance: CEPHALEXIN
  3. NORCO [Concomitant]
     Active Substance: ACETAMINOPHEN\HYDROCODONE BITARTRATE
  4. NORVIR [Concomitant]
     Active Substance: RITONAVIR
  5. EPZICOM [Concomitant]
     Active Substance: ABACAVIR SULFATE\LAMIVUDINE
  6. LIPITOR [Concomitant]
     Active Substance: ATORVASTATIN CALCIUM
  7. FLOMAX [Concomitant]
     Active Substance: TAMSULOSIN HYDROCHLORIDE
  8. PATANASE [Concomitant]
     Active Substance: OLOPATADINE HYDROCHLORIDE
  9. XANAX [Concomitant]
     Active Substance: ALPRAZOLAM
  10. ZANTAC [Concomitant]
     Active Substance: RANITIDINE HYDROCHLORIDE
  11. AUGMENTIN [Concomitant]
     Active Substance: AMOXICILLIN\CLAVULANATE POTASSIUM
  12. LOVAZA [Concomitant]
     Active Substance: OMEGA-3-ACID ETHYL ESTERS
  13. HYDROXYZINE [Concomitant]
     Active Substance: HYDROXYZINE HYDROCHLORIDE
  14. MARINOL [Concomitant]
     Active Substance: DRONABINOL
  15. PATADAY [Concomitant]
     Active Substance: OLOPATADINE HYDROCHLORIDE
  16. XOPENEX [Concomitant]
     Active Substance: LEVALBUTEROL HYDROCHLORIDE
  17. TRUVADA [Suspect]
     Active Substance: EMTRICITABINE\TENOFOVIR DISOPROXIL FUMARATE
     Indication: HIV INFECTION
     Dosage: UNK
     Route: 048
     Dates: start: 2012, end: 2015
  18. VICOPROFEN [Concomitant]
     Active Substance: HYDROCODONE BITARTRATE\IBUPROFEN
  19. NEXIUM I.V. [Concomitant]
     Active Substance: ESOMEPRAZOLE SODIUM
  20. LEVOCETIRIZINE [Concomitant]
     Active Substance: LEVOCETIRIZINE
  21. LOSARTAN. [Concomitant]
     Active Substance: LOSARTAN
  22. VOLTAREN [DICLOFENAC] [Concomitant]
     Active Substance: DICLOFENAC SODIUM
  23. SEROSTIM [Concomitant]
     Active Substance: SOMATROPIN
  24. BENZONATATE. [Concomitant]
     Active Substance: BENZONATATE
  25. ENOXAPARIN [Concomitant]
     Active Substance: ENOXAPARIN
  26. HYDROCHLOROTHIAZIDE. [Concomitant]
     Active Substance: HYDROCHLOROTHIAZIDE
  27. ZITHROMAX [Concomitant]
     Active Substance: AZITHROMYCIN DIHYDRATE
  28. ECONAZOLE. [Concomitant]
     Active Substance: ECONAZOLE NITRATE
  29. FLONASE [Concomitant]
     Active Substance: FLUTICASONE PROPIONATE
  30. PANTOPRAZOLE [Concomitant]
     Active Substance: PANTOPRAZOLE
  31. GENVOYA [Concomitant]
     Active Substance: COBICISTAT\ELVITEGRAVIR\EMTRICITABINE\TENOFOVIR ALAFENAMIDE FUMARATE
     Dosage: UNK
     Dates: start: 20180813
  32. AMOXICILLIN. [Concomitant]
     Active Substance: AMOXICILLIN
  33. GUAIFENESIN. [Concomitant]
     Active Substance: GUAIFENESIN
  34. LEVOFLOXACIN. [Concomitant]
     Active Substance: LEVOFLOXACIN
  35. KALETRA [Concomitant]
     Active Substance: LOPINAVIR\RITONAVIR
  36. DIOVAN HCT [Concomitant]
     Active Substance: HYDROCHLOROTHIAZIDE\VALSARTAN
  37. ZYRTEC [Concomitant]
     Active Substance: CETIRIZINE HYDROCHLORIDE
  38. PREZCOBIX [Concomitant]
     Active Substance: COBICISTAT\DARUNAVIR ETHANOLATE
  39. LEXIVA [Concomitant]
     Active Substance: FOSAMPRENAVIR CALCIUM
  40. NAPROXEN. [Concomitant]
     Active Substance: NAPROXEN
  41. AMLODIPINE BESYLATE. [Concomitant]
     Active Substance: AMLODIPINE BESYLATE
  42. CYANOCOBALAMIN. [Concomitant]
     Active Substance: CYANOCOBALAMIN
  43. MEDROL [Concomitant]
     Active Substance: METHYLPREDNISOLONE

REACTIONS (10)
  - Anxiety [Unknown]
  - Chronic kidney disease [Not Recovered/Not Resolved]
  - Osteonecrosis [Not Recovered/Not Resolved]
  - Economic problem [Unknown]
  - Renal failure [Unknown]
  - Emotional distress [Unknown]
  - Bone density decreased [Unknown]
  - Pain [Unknown]
  - Bone loss [Unknown]
  - Anhedonia [Unknown]

NARRATIVE: CASE EVENT DATE: 201709
